FAERS Safety Report 9105813 (Version 2)
Quarter: 2013Q1

REPORT INFORMATION
  Report Type: Report from Study
  Country: FR (occurrence: FR)
  Receive Date: 20130220
  Receipt Date: 20130226
  Transmission Date: 20140127
  Serious: Yes (Death, Hospitalization)
  Sender: FDA-Public Use
  Company Number: FR-GLAXOSMITHKLINE-B0868528A

PATIENT
  Age: 61 None
  Sex: Male

DRUGS (10)
  1. OFATUMUMAB [Suspect]
     Indication: CHRONIC LYMPHOCYTIC LEUKAEMIA
     Dosage: 300MG CYCLIC
     Route: 042
     Dates: start: 20100225, end: 20100416
  2. DEXAMETHASONE [Suspect]
     Indication: CHRONIC LYMPHOCYTIC LEUKAEMIA
     Route: 042
     Dates: start: 20100614
  3. ARACYTINE [Suspect]
     Indication: CHRONIC LYMPHOCYTIC LEUKAEMIA
     Route: 042
     Dates: start: 20100614
  4. OXALIPLATINE [Suspect]
     Indication: CHRONIC LYMPHOCYTIC LEUKAEMIA
     Route: 042
     Dates: start: 20100614
  5. RITUXIMAB [Concomitant]
     Indication: CHRONIC LYMPHOCYTIC LEUKAEMIA
     Dates: start: 200808, end: 2009
  6. BENDAMUSTINE [Concomitant]
     Indication: CHRONIC LYMPHOCYTIC LEUKAEMIA
     Dates: start: 20090219, end: 20090421
  7. FOLIC ACID [Concomitant]
     Indication: CHRONIC LYMPHOCYTIC LEUKAEMIA
  8. VALACYCLOVIR [Concomitant]
  9. ATOVAQUONE [Concomitant]
  10. TEGELINE [Concomitant]
     Indication: CHRONIC LYMPHOCYTIC LEUKAEMIA
     Dates: start: 20090626

REACTIONS (13)
  - Progressive multifocal leukoencephalopathy [Fatal]
  - Pneumatosis [Recovering/Resolving]
  - Disease progression [Unknown]
  - Diarrhoea [Unknown]
  - Vasculitis gastrointestinal [Unknown]
  - Asthenia [Unknown]
  - Fall [Unknown]
  - Motor dysfunction [Unknown]
  - Gait disturbance [Unknown]
  - Extensor plantar response [Unknown]
  - Hemiplegia [Not Recovered/Not Resolved]
  - Altered state of consciousness [Not Recovered/Not Resolved]
  - Haematotoxicity [Unknown]
